FAERS Safety Report 9507855 (Version 1)
Quarter: 2013Q3

REPORT INFORMATION
  Report Type: Spontaneous
  Country: CO (occurrence: CO)
  Receive Date: 20130909
  Receipt Date: 20130909
  Transmission Date: 20140515
  Serious: Yes (Other)
  Sender: FDA-Public Use
  Company Number: CO-PFIZER INC-2013258476

PATIENT
  Age: 87 Year
  Sex: Male

DRUGS (5)
  1. NEURONTIN [Suspect]
     Indication: NEUROPATHY PERIPHERAL
     Dosage: 400 MG, 2X/DAY
     Route: 048
     Dates: start: 2007
  2. AMARYL [Concomitant]
     Indication: DIABETES MELLITUS
     Dosage: 1 G, 1X/DAY
     Route: 048
     Dates: start: 1989
  3. ISOSORBIDE MONONITRATE [Concomitant]
     Indication: CARDIAC DISORDER
     Dosage: 20 MG, 1X/DAY
     Route: 048
     Dates: start: 2009
  4. IRBESARTAN [Concomitant]
     Indication: HYPERTENSION
     Dosage: 150 MG, 1X/DAY
     Route: 048
     Dates: start: 2012
  5. CARVEDILOL [Concomitant]
     Indication: CARDIAC DISORDER
     Dosage: 6.25 MG, 1X/DAY
     Route: 048
     Dates: start: 2012

REACTIONS (2)
  - Cardiac arrest [Not Recovered/Not Resolved]
  - Lung disorder [Not Recovered/Not Resolved]
